FAERS Safety Report 4541212-6 (Version None)
Quarter: 2004Q4

REPORT INFORMATION
  Report Type: 
  Country: None (occurrence: None)
  Receive Date: 20041227
  Receipt Date: 20041220
  Transmission Date: 20050328
  Serious: Yes (Hospitalization)
  Sender: FDA-Public Use
  Company Number: DEWYE294820DEC04

PATIENT
  Age: 62 Year
  Sex: Male

DRUGS (10)
  1. RAPAMUNE [Suspect]
     Indication: PROPHYLAXIS AGAINST TRANSPLANT REJECTION
     Dosage: 6 MG
     Route: 048
     Dates: start: 20020918
  2. METHYLPREDNISOLONE [Concomitant]
  3. DELIX PLUS (HYDROCHLOROTHIAZIDE/RAMIPRIL) [Concomitant]
  4. BELOC ZOK (METOPROLOL SUCCINATE) [Concomitant]
  5. PHYSIOTENS (MONOXIDINE) [Concomitant]
  6. TOREM (TORASEMIDE) [Concomitant]
  7. ALLOPURINOL [Concomitant]
  8. NEORECORMON (EPOETIN BETA) [Concomitant]
  9. NEPRESOL (DIHYDRALAZINE SULFATE) [Concomitant]
  10. ZOLOFT [Concomitant]

REACTIONS (3)
  - FLUID INTAKE REDUCED [None]
  - RENAL FAILURE ACUTE [None]
  - TRANSAMINASES INCREASED [None]
